FAERS Safety Report 24217850 (Version 1)
Quarter: 2024Q3

REPORT INFORMATION
  Report Type: Spontaneous
  Country: US (occurrence: US)
  Receive Date: 20240816
  Receipt Date: 20240816
  Transmission Date: 20241016
  Serious: Yes (Other)
  Sender: TEVA
  Company Number: US-TEVA-VS-3231050

PATIENT
  Age: 57 Year
  Sex: Male
  Weight: 68.04 kg

DRUGS (1)
  1. UZEDY [Suspect]
     Active Substance: RISPERIDONE
     Indication: Product used for unknown indication
     Dosage: STRENGTH: 200/0.56 MG/ML
     Route: 065

REACTIONS (4)
  - Type 2 diabetes mellitus [Unknown]
  - Injection site pain [Not Recovered/Not Resolved]
  - Neuropathy peripheral [Unknown]
  - Injection site induration [Unknown]

NARRATIVE: CASE EVENT DATE: 20240802
